FAERS Safety Report 16304630 (Version 1)
Quarter: 2019Q2

REPORT INFORMATION
  Report Type: Spontaneous
  Country: GB (occurrence: GB)
  Receive Date: 20190513
  Receipt Date: 20190513
  Transmission Date: 20190711
  Serious: Yes (Other)
  Sender: FDA-Public Use
  Company Number: GB-BAUSCH-BL-2019-013495

PATIENT
  Age: 21 Year
  Sex: Male

DRUGS (2)
  1. ALDARA [Suspect]
     Active Substance: IMIQUIMOD
     Dosage: REDUCED IT TO ONCE OR TWICE A WEEK
     Route: 065
     Dates: start: 2007, end: 2007
  2. ALDARA [Suspect]
     Active Substance: IMIQUIMOD
     Indication: PENILE WART
     Route: 065
     Dates: start: 2007, end: 2007

REACTIONS (1)
  - Lichen planus [Recovered/Resolved]

NARRATIVE: CASE EVENT DATE: 2007
